FAERS Safety Report 7719622-5 (Version None)
Quarter: 2011Q3

REPORT INFORMATION
  Report Type: 
  Country: None (occurrence: None)
  Receive Date: 20110830
  Receipt Date: 20110824
  Transmission Date: 20111222
  Serious: Yes (Life-Threatening, Hospitalization, Other)
  Sender: FDA-Public Use
  Company Number: FR-ABBOTT-10P-056-0681211-00

PATIENT
  Sex: Female

DRUGS (21)
  1. VIREAD [Concomitant]
     Indication: PRODUCT USED FOR UNKNOWN INDICATION
     Dates: start: 20100811, end: 20100811
  2. RITONAVIR [Suspect]
     Route: 048
     Dates: start: 20100719
  3. RITONAVIR [Suspect]
     Route: 048
     Dates: start: 20100811
  4. VIDEX [Concomitant]
     Indication: PRODUCT USED FOR UNKNOWN INDICATION
     Dates: start: 20100625
  5. RITONAVIR [Suspect]
     Route: 048
  6. PIASCLEDINE [Concomitant]
     Indication: PRODUCT USED FOR UNKNOWN INDICATION
     Route: 048
  7. DARUNAVIR [Suspect]
     Indication: HIV INFECTION
     Route: 048
     Dates: start: 20100528
  8. ATAZANAVIR [Suspect]
     Indication: PRODUCT USED FOR UNKNOWN INDICATION
     Dates: start: 20100819
  9. EPIVIR [Concomitant]
     Indication: PRODUCT USED FOR UNKNOWN INDICATION
     Dates: start: 20100625
  10. ISENTRESS [Concomitant]
     Dates: start: 20100817
  11. RITONAVIR [Suspect]
     Indication: HIV INFECTION
     Route: 048
     Dates: start: 20100528
  12. TRUVADA [Concomitant]
     Indication: HIV INFECTION
     Route: 048
     Dates: start: 20100528
  13. TRUVADA [Concomitant]
     Route: 048
     Dates: start: 20100811
  14. HOMEOPATHY NOS [Concomitant]
     Indication: PRODUCT USED FOR UNKNOWN INDICATION
  15. DARUNAVIR [Suspect]
     Route: 048
     Dates: start: 20100719
  16. TANAKAN [Concomitant]
     Indication: PRODUCT USED FOR UNKNOWN INDICATION
     Route: 048
  17. ISENTRESS [Concomitant]
     Indication: PRODUCT USED FOR UNKNOWN INDICATION
     Dates: start: 20100625
  18. DARUNAVIR [Suspect]
     Route: 048
     Dates: start: 20100811
  19. DARUNAVIR [Suspect]
     Route: 048
  20. TRUVADA [Concomitant]
     Route: 048
     Dates: start: 20100719
  21. TRUVADA [Concomitant]
     Route: 048

REACTIONS (10)
  - ANAPHYLACTIC SHOCK [None]
  - PYREXIA [None]
  - PANCYTOPENIA [None]
  - ACUTE GENERALISED EXANTHEMATOUS PUSTULOSIS [None]
  - SKIN LESION [None]
  - RASH [None]
  - SPLENOMEGALY [None]
  - RASH PAPULAR [None]
  - GENERALISED ERYTHEMA [None]
  - RASH GENERALISED [None]
